FAERS Safety Report 24625192 (Version 4)
Quarter: 2025Q1

REPORT INFORMATION
  Report Type: Report from Study
  Country: TR (occurrence: TR)
  Receive Date: 20241115
  Receipt Date: 20250328
  Transmission Date: 20250409
  Serious: Yes (Hospitalization, Other)
  Sender: PFIZER
  Company Number: TR-PFIZER INC-PV202400087226

PATIENT
  Age: 40 Year
  Sex: Male

DRUGS (7)
  1. ELRANATAMAB [Suspect]
     Active Substance: ELRANATAMAB
     Indication: Plasma cell myeloma
     Dates: end: 20240422
  2. DARATUMUMAB [Concomitant]
     Active Substance: DARATUMUMAB
     Indication: Plasma cell myeloma
     Dates: start: 202106
  3. DARATUMUMAB [Concomitant]
     Active Substance: DARATUMUMAB
     Dates: start: 202408
  4. DEXAMETHASONE [Concomitant]
     Active Substance: DEXAMETHASONE
     Indication: Plasma cell myeloma
     Dates: start: 202106
  5. DEXAMETHASONE [Concomitant]
     Active Substance: DEXAMETHASONE
     Dates: start: 202408
  6. LENALIDOMIDE [Concomitant]
     Active Substance: LENALIDOMIDE
     Indication: Plasma cell myeloma
     Dates: start: 202106
  7. LENALIDOMIDE [Concomitant]
     Active Substance: LENALIDOMIDE
     Dates: start: 202408

REACTIONS (8)
  - Pneumonia [Unknown]
  - Humerus fracture [Unknown]
  - Shoulder fracture [Unknown]
  - Pathological fracture [Unknown]
  - Pseudomonas infection [Unknown]
  - Neutropenia [Unknown]
  - Spinal stenosis [Unknown]
  - Neoplasm progression [Unknown]

NARRATIVE: CASE EVENT DATE: 20240101
